FAERS Safety Report 5688562-8 (Version None)
Quarter: 2008Q1

REPORT INFORMATION
  Report Type: 
  Country: None (occurrence: None)
  Receive Date: 20080331
  Receipt Date: 20080320
  Transmission Date: 20080703
  Serious: Yes (Other)
  Sender: FDA-Public Use
  Company Number: US-ROCHE-554533

PATIENT
  Sex: Female

DRUGS (1)
  1. TAMIFLU [Suspect]
     Route: 065
     Dates: start: 20080315

REACTIONS (4)
  - AGEUSIA [None]
  - HYPOACUSIS [None]
  - MENTAL DISORDER [None]
  - NIGHTMARE [None]
